FAERS Safety Report 21746918 (Version 1)
Quarter: 2022Q4

REPORT INFORMATION
  Report Type: Spontaneous
  Country: US (occurrence: US)
  Receive Date: 20221219
  Receipt Date: 20221219
  Transmission Date: 20230113
  Serious: No
  Sender: FDA-Public Use
  Company Number: US-SA-SAC20221216000728

PATIENT
  Age: 53 Year
  Sex: Male
  Weight: 107.48 kg

DRUGS (6)
  1. DUPIXENT [Suspect]
     Active Substance: DUPILUMAB
     Indication: Dermatitis atopic
     Dosage: 300 MG, QOW
     Route: 058
     Dates: start: 202007
  2. CELEBREX [Concomitant]
     Active Substance: CELECOXIB
  3. IRON [Concomitant]
     Active Substance: IRON
  4. ALLERGY RELIEF [LORATADINE] [Concomitant]
  5. TURMERIC [CURCUMA LONGA ROOT] [Concomitant]
  6. DAILY-VITE [Concomitant]

REACTIONS (2)
  - Eye disorder [Unknown]
  - Food allergy [Not Recovered/Not Resolved]
